FAERS Safety Report 4811530-2 (Version None)
Quarter: 2005Q4

REPORT INFORMATION
  Report Type: 
  Country: None (occurrence: None)
  Receive Date: 20051025
  Receipt Date: 20051010
  Transmission Date: 20060501
  Serious: Yes (Death, Life-Threatening)
  Sender: FDA-Public Use
  Company Number: 2005-01312

PATIENT
  Age: 23 Year
  Sex: Female

DRUGS (2)
  1. VELCADE [Suspect]
     Indication: MULTIPLE MYELOMA
     Dosage: 2.10 MG, UNK, INTRAVENOUS; 1.60 MG, SINGLE, INTRAVENOUS
     Route: 042
     Dates: start: 20050614, end: 20050614
  2. VELCADE [Suspect]
     Indication: MULTIPLE MYELOMA
     Dosage: 2.10 MG, UNK, INTRAVENOUS; 1.60 MG, SINGLE, INTRAVENOUS
     Route: 042
     Dates: start: 20050520

REACTIONS (7)
  - APNOEA [None]
  - COMA [None]
  - DISEASE PROGRESSION [None]
  - LEUKOPENIA [None]
  - LUNG INFILTRATION [None]
  - RESPIRATORY FAILURE [None]
  - THROMBOCYTOPENIA [None]
